FAERS Safety Report 8567353-4 (Version None)
Quarter: 2012Q3

REPORT INFORMATION
  Report Type: 
  Country: None (occurrence: None)
  Receive Date: 20120730
  Receipt Date: 20120730
  Transmission Date: 20120928
  Serious: No
  Sender: FDA-Public Use
  Company Number: None

PATIENT
  Age: 58 Year
  Sex: Male
  Weight: 90.7194 kg

DRUGS (1)
  1. RANIBIZUMAB 10MG/ML,0.3ML/VIA GENENTECH, INC [Suspect]
     Indication: DIABETIC RETINAL OEDEMA
     Dosage: .05ML PRN INTRAOCULAR
     Route: 031
     Dates: start: 20120104, end: 20120706

REACTIONS (1)
  - VITH NERVE PARALYSIS [None]
